FAERS Safety Report 15111470 (Version 4)
Quarter: 2018Q3

REPORT INFORMATION
  Report Type: Spontaneous
  Country: TW (occurrence: TW)
  Receive Date: 20180705
  Receipt Date: 20180920
  Transmission Date: 20181010
  Serious: Yes (Hospitalization, Other)
  Sender: FDA-Public Use
  Company Number: TW-PFIZER INC-2018120843

PATIENT
  Age: 68 Year
  Sex: Male

DRUGS (5)
  1. SUTENT [Suspect]
     Active Substance: SUNITINIB MALATE
     Dosage: 50 MG, CYCLIC (QD, FOUR WEEKS ON AND TWO WEEKS OFF)
     Route: 048
     Dates: start: 20180326
  2. SUTENT [Suspect]
     Active Substance: SUNITINIB MALATE
     Dosage: 12.5 MG, 1X/DAY
     Route: 048
     Dates: start: 20180702
  3. SUTENT [Suspect]
     Active Substance: SUNITINIB MALATE
     Dosage: 4 DF, CYCLIC(QD, FOUR WEEKS ON AND TWO WEEKS OFF)
     Route: 048
     Dates: start: 20180813
  4. SUTENT [Suspect]
     Active Substance: SUNITINIB MALATE
     Indication: RENAL CELL CARCINOMA
     Dosage: 50 MG, CYCLIC (QD, FOUR WEEKS ON AND TWO WEEKS OFF)
     Route: 048
     Dates: start: 20180214, end: 20180312
  5. SUTENT [Suspect]
     Active Substance: SUNITINIB MALATE
     Dosage: 50 MG, CYCLIC (QD, FOUR WEEKS ON AND TWO WEEKS OFF)
     Route: 048

REACTIONS (4)
  - Fatigue [Recovered/Resolved]
  - Palmar-plantar erythrodysaesthesia syndrome [Recovered/Resolved]
  - White blood cell count decreased [Recovered/Resolved]
  - Gastric ulcer [Recovering/Resolving]

NARRATIVE: CASE EVENT DATE: 2018
